FAERS Safety Report 25898884 (Version 3)
Quarter: 2025Q4

REPORT INFORMATION
  Report Type: Spontaneous
  Country: CA (occurrence: CA)
  Receive Date: 20251009
  Receipt Date: 20251112
  Transmission Date: 20260118
  Serious: Yes (Other)
  Sender: CELLTRION
  Company Number: CA-CELLTRION INC.-2025CA035937

PATIENT

DRUGS (4)
  1. INFLIXIMAB [Suspect]
     Active Substance: INFLIXIMAB
     Indication: Colitis ulcerative
     Dosage: REMDANTRY - MAINTENANCE - 5 MG/KG - IV  (INTRAVENOUS) EVERY 8 WEEKS
     Route: 042
     Dates: start: 20250806
  2. INFLIXIMAB [Suspect]
     Active Substance: INFLIXIMAB
     Dosage: REMDANTRY - MAINTENANCE - 5 MG/KG - IV  (INTRAVENOUS) EVERY 4 WEEKS
     Route: 042
     Dates: start: 20250806
  3. INFLIXIMAB [Suspect]
     Active Substance: INFLIXIMAB
     Dosage: REMDANTRY - MAINTENANCE - 5 MG/KG - IV  (INTRAVENOUS) EVERY 4 WEEKS
     Route: 042
     Dates: start: 20250806
  4. INFLIXIMAB [Suspect]
     Active Substance: INFLIXIMAB
     Dosage: UNK, EVERY 4 WEEKS
     Route: 042
     Dates: start: 20251103

REACTIONS (3)
  - Colitis ulcerative [Not Recovered/Not Resolved]
  - Drug level below therapeutic [Unknown]
  - Inappropriate schedule of product administration [Unknown]

NARRATIVE: CASE EVENT DATE: 20250101
